FAERS Safety Report 9768268 (Version 1)
Quarter: 2013Q4

REPORT INFORMATION
  Report Type: Spontaneous
  Country: EC (occurrence: EC)
  Receive Date: 20131217
  Receipt Date: 20131217
  Transmission Date: 20140711
  Serious: Yes (Death, Other)
  Sender: FDA-Public Use
  Company Number: EC-PFIZER INC-2013361062

PATIENT
  Age: 61 Year
  Sex: Male

DRUGS (1)
  1. LYRICA [Suspect]
     Indication: NEURALGIA
     Dosage: 75MG IN MORNING AND 150MG IN NIGHT, TWICE DAILY
     Route: 048
     Dates: start: 201304, end: 20131111

REACTIONS (1)
  - Lung neoplasm malignant [Fatal]
